FAERS Safety Report 5035201-5 (Version None)
Quarter: 2006Q2

REPORT INFORMATION
  Report Type: 
  Country: None (occurrence: None)
  Receive Date: 20060627
  Receipt Date: 20060619
  Transmission Date: 20061013
  Serious: Yes (Death, Other)
  Sender: FDA-Public Use
  Company Number: US-AVENTIS-200615359US

PATIENT

DRUGS (2)
  1. KETEK [Suspect]
     Dosage: DOSE: UNK
  2. UNKNOWN DRUG [Concomitant]
     Dosage: DOSE: UNK

REACTIONS (2)
  - ARRHYTHMIA [None]
  - DEATH [None]
